FAERS Safety Report 14284385 (Version 1)
Quarter: 2017Q4

REPORT INFORMATION
  Report Type: Spontaneous
  Country: FR (occurrence: FR)
  Receive Date: 20171214
  Receipt Date: 20171214
  Transmission Date: 20180321
  Serious: Yes (Other)
  Sender: FDA-Public Use
  Company Number: FR-SEPTODONT-201704413

PATIENT
  Age: 49 Year
  Sex: Male

DRUGS (2)
  1. SEPTANEST 40 MG/ML WITH ADRENALINE 1:200 000 [Suspect]
     Active Substance: ARTICAINE HYDROCHLORIDE\EPINEPHRINE BITARTRATE
     Indication: DENTAL LOCAL ANAESTHESIA
     Dates: start: 20171020
  2. ZIAGEL [Concomitant]
     Indication: DENTAL LOCAL ANAESTHESIA

REACTIONS (3)
  - Procedural pain [Unknown]
  - Injection site necrosis [Recovered/Resolved]
  - Swelling [Unknown]
